FAERS Safety Report 24371134 (Version 1)
Quarter: 2024Q3

REPORT INFORMATION
  Report Type: Spontaneous
  Country: CN (occurrence: CN)
  Receive Date: 20240927
  Receipt Date: 20240927
  Transmission Date: 20241016
  Serious: Yes (Other)
  Sender: ACCORD
  Company Number: None

PATIENT
  Age: 76 Year
  Sex: Male

DRUGS (3)
  1. TRASTUZUMAB [Suspect]
     Active Substance: TRASTUZUMAB
     Indication: Neoplasm
     Dosage: STRENGTH: 150 MILLIGRAM, INJECTION?360 MILLIGRAM, QD
     Route: 042
     Dates: start: 20240904, end: 20240904
  2. OXALIPLATIN [Suspect]
     Active Substance: OXALIPLATIN
     Indication: Neoplasm
     Dosage: 200 MILLIGRAM, QD, INJECTION
     Route: 042
     Dates: start: 20240904, end: 20240904
  3. CAPECITABINE [Suspect]
     Active Substance: CAPECITABINE
     Indication: Neoplasm
     Dosage: 1.5 GRAM, QD
     Route: 048
     Dates: start: 20240904, end: 20240907

REACTIONS (1)
  - Myelosuppression [Recovering/Resolving]

NARRATIVE: CASE EVENT DATE: 20240904
